FAERS Safety Report 21633875 (Version 1)
Quarter: 2022Q4

REPORT INFORMATION
  Report Type: Spontaneous
  Country: US (occurrence: None)
  Receive Date: 20221122
  Receipt Date: 20221122
  Transmission Date: 20230112
  Serious: No
  Sender: FDA-Public Use
  Company Number: None

PATIENT
  Age: 70 Year
  Sex: Male

DRUGS (1)
  1. CAPECITABINE [Suspect]
     Active Substance: CAPECITABINE
     Dosage: 1600MG BID ORAL
     Route: 048
     Dates: start: 202208

REACTIONS (10)
  - Nausea [None]
  - Dehydration [None]
  - Abscess [None]
  - Post procedural complication [None]
  - Therapy interrupted [None]
  - Neuropathy peripheral [None]
  - Hyperaesthesia [None]
  - Taste disorder [None]
  - Fatigue [None]
  - Diarrhoea [None]

NARRATIVE: CASE EVENT DATE: 20220924
